FAERS Safety Report 6758212-8 (Version None)
Quarter: 2010Q2

REPORT INFORMATION
  Report Type: 
  Country: None (occurrence: None)
  Receive Date: 20100607
  Receipt Date: 20100528
  Transmission Date: 20101027
  Serious: Yes (Life-Threatening, Hospitalization, Other)
  Sender: FDA-Public Use
  Company Number: JP-MPIJNJ-2010-02878

PATIENT

DRUGS (11)
  1. VELCADE [Suspect]
     Indication: MULTIPLE MYELOMA
     Dosage: 2.07 MG, UNK
     Route: 042
     Dates: start: 20100405, end: 20100408
  2. VELCADE [Suspect]
     Dosage: 1.6 MG, UNK
     Route: 042
     Dates: start: 20100508, end: 20100511
  3. VORINOSTAT [Suspect]
     Indication: MULTIPLE MYELOMA
     Dosage: 400 MG, UNK
     Route: 048
     Dates: start: 20100405, end: 20100513
  4. ZYLORIC                            /00003301/ [Concomitant]
     Dosage: UNK
     Route: 048
     Dates: start: 20100412
  5. KOLANTYL                           /00130401/ [Concomitant]
     Dosage: UNK
     Route: 048
     Dates: start: 20051108
  6. HYPOCA                             /01301601/ [Concomitant]
     Dosage: UNK
     Route: 048
     Dates: start: 20020920
  7. ARTIST [Concomitant]
     Dosage: UNK
     Route: 048
     Dates: start: 20020920
  8. NU LOTAN [Concomitant]
     Dosage: UNK
     Route: 048
     Dates: start: 20020920
  9. MAGNESIUM OXIDE [Concomitant]
     Dosage: UNK
     Route: 048
     Dates: start: 20051108
  10. MEVALOTIN [Concomitant]
     Dosage: UNK
     Route: 048
     Dates: start: 20020920
  11. ULCERLMIN [Concomitant]
     Dosage: UNK
     Route: 048
     Dates: start: 20051108

REACTIONS (8)
  - BLOOD CREATINE PHOSPHOKINASE INCREASED [None]
  - DECREASED APPETITE [None]
  - DEHYDRATION [None]
  - DISSEMINATED INTRAVASCULAR COAGULATION [None]
  - ESCHERICHIA SEPSIS [None]
  - GASTROINTESTINAL TOXICITY [None]
  - PYELONEPHRITIS [None]
  - THROMBOCYTOPENIA [None]
